FAERS Safety Report 18782583 (Version 1)
Quarter: 2021Q1

REPORT INFORMATION
  Report Type: Spontaneous
  Country: US (occurrence: US)
  Receive Date: 20210125
  Receipt Date: 20210125
  Transmission Date: 20210419
  Serious: No
  Sender: FDA-Public Use
  Company Number: US-ALLERGAN-2028216US

PATIENT
  Sex: Female

DRUGS (1)
  1. RESTASIS [Suspect]
     Active Substance: CYCLOSPORINE
     Indication: DRY EYE
     Dosage: 2 GTT, BID
     Route: 047
     Dates: start: 202004, end: 20200725

REACTIONS (8)
  - Ocular hyperaemia [Recovering/Resolving]
  - Corneal perforation [Unknown]
  - Eye irritation [Recovering/Resolving]
  - Dry eye [Not Recovered/Not Resolved]
  - Eye pain [Recovering/Resolving]
  - Foreign body sensation in eyes [Recovering/Resolving]
  - Vision blurred [Recovering/Resolving]
  - Injury corneal [Unknown]

NARRATIVE: CASE EVENT DATE: 202007
